FAERS Safety Report 10080926 (Version 2)
Quarter: 2014Q2

REPORT INFORMATION
  Report Type: Spontaneous
  Country: LV (occurrence: LV)
  Receive Date: 20140416
  Receipt Date: 20140428
  Transmission Date: 20141212
  Serious: Yes (Hospitalization)
  Sender: FDA-Public Use
  Company Number: LV-SA-2014SA044803

PATIENT
  Age: 82 Year
  Sex: Male

DRUGS (4)
  1. AMARYL [Suspect]
     Indication: DIABETES MELLITUS
     Route: 048
     Dates: start: 2005, end: 20140228
  2. METFORMIN [Concomitant]
  3. METFORMIN [Concomitant]
     Dates: end: 2005
  4. DIAPREL [Concomitant]
     Dates: end: 2005

REACTIONS (6)
  - Mental disorder [Recovered/Resolved]
  - Dementia [Not Recovered/Not Resolved]
  - Convulsion [Recovered/Resolved]
  - Hypoglycaemia [Recovered/Resolved]
  - Aggression [Recovered/Resolved]
  - Disorientation [Recovered/Resolved]
